FAERS Safety Report 13239532 (Version 1)
Quarter: 2017Q1

REPORT INFORMATION
  Report Type: Spontaneous
  Country: US (occurrence: US)
  Receive Date: 20170216
  Receipt Date: 20170216
  Transmission Date: 20170428
  Serious: No
  Sender: FDA-Public Use
  Company Number: US-BAYER-2017-024012

PATIENT

DRUGS (1)
  1. MIRENA [Suspect]
     Active Substance: LEVONORGESTREL
     Dosage: 20 MCG/24HR, CONT
     Route: 015
     Dates: start: 2015

REACTIONS (4)
  - Abdominal pain [None]
  - Night sweats [None]
  - Vaginal haemorrhage [None]
  - Endometrial disorder [None]

NARRATIVE: CASE EVENT DATE: 2015
